FAERS Safety Report 7530016-8 (Version None)
Quarter: 2011Q2

REPORT INFORMATION
  Report Type: 
  Country: None (occurrence: None)
  Receive Date: 20110606
  Receipt Date: 20110606
  Transmission Date: 20111010
  Serious: Yes (Life-Threatening, Hospitalization, Disabling, Other)
  Sender: FDA-Public Use
  Company Number: None

PATIENT
  Age: 42 Year
  Sex: Female
  Weight: 40.3701 kg

DRUGS (1)
  1. SUBOXONE [Suspect]
     Indication: DRUG DEPENDENCE
     Dosage: 8MG ONE PER DAY SL
     Route: 060
     Dates: start: 20020101, end: 20110602

REACTIONS (19)
  - CONVULSION [None]
  - VOMITING [None]
  - WEIGHT DECREASED [None]
  - NEPHROLITHIASIS [None]
  - GASTRIC ULCER [None]
  - TREMOR [None]
  - RASH [None]
  - RENAL FAILURE [None]
  - ALOPECIA [None]
  - TOOTH LOSS [None]
  - HEADACHE [None]
  - VISION BLURRED [None]
  - DECREASED APPETITE [None]
  - ONYCHOMADESIS [None]
  - INSOMNIA [None]
  - TIC [None]
  - DRUG DEPENDENCE [None]
  - ULCER [None]
  - URTICARIA [None]
